FAERS Safety Report 11003594 (Version 1)
Quarter: 2015Q2

REPORT INFORMATION
  Report Type: Spontaneous
  Country: GB (occurrence: GB)
  Receive Date: 20150409
  Receipt Date: 20150409
  Transmission Date: 20150821
  Serious: Yes (Other)
  Sender: FDA-Public Use
  Company Number: GB-ALKEM-000932

PATIENT
  Age: 91 Year
  Sex: Male

DRUGS (4)
  1. CEFALEXIN [Suspect]
     Active Substance: CEPHALEXIN
     Indication: PRODUCT USED FOR UNKNOWN INDICATION
  2. ACETYLSALICYLIC ACID [Concomitant]
     Active Substance: ASPIRIN
  3. CALCIUM CARBONATE/COLECALCIFEROL [Concomitant]
  4. LACTULOSE. [Concomitant]
     Active Substance: LACTULOSE

REACTIONS (5)
  - Abdominal pain [Unknown]
  - Pancytopenia [Unknown]
  - Blood urine present [Unknown]
  - Groin pain [Unknown]
  - Urosepsis [Unknown]
